FAERS Safety Report 6039313-9 (Version None)
Quarter: 2009Q1

REPORT INFORMATION
  Report Type: 
  Country: None (occurrence: None)
  Receive Date: 20090115
  Receipt Date: 20090108
  Transmission Date: 20090719
  Serious: Yes (Other)
  Sender: FDA-Public Use
  Company Number: US-B.I. PHARMACEUTICALS,INC./RIDGEFIELD-2009-BP-00234BP

PATIENT
  Age: 30 Year
  Sex: Male

DRUGS (3)
  1. DULCOLAX [Suspect]
     Indication: CONSTIPATION
     Route: 048
     Dates: start: 20080901
  2. AMBIEN [Concomitant]
     Indication: INSOMNIA
     Route: 048
     Dates: start: 20030101
  3. ADDERALL 10 [Concomitant]
     Indication: ATTENTION DEFICIT/HYPERACTIVITY DISORDER
     Route: 048
     Dates: start: 20080801

REACTIONS (1)
  - DEPENDENCE [None]
